FAERS Safety Report 4980801-1 (Version None)
Quarter: 2006Q2

REPORT INFORMATION
  Report Type: 
  Country: None (occurrence: None)
  Receive Date: 20060424
  Receipt Date: 20060322
  Transmission Date: 20061013
  Serious: Yes (Hospitalization, Disabling, Other)
  Sender: FDA-Public Use
  Company Number: US-MERCK-0603USA03564

PATIENT
  Age: 35 Year
  Sex: Male
  Weight: 100 kg

DRUGS (3)
  1. VIOXX [Suspect]
     Indication: BACK PAIN
     Route: 048
     Dates: start: 20010725, end: 20011001
  2. DARVOCET [Concomitant]
     Route: 065
  3. FLEXERIL [Concomitant]
     Route: 065

REACTIONS (16)
  - ANGIOPLASTY [None]
  - BACK INJURY [None]
  - BACK PAIN [None]
  - INTERVERTEBRAL DISC OPERATION [None]
  - INTRACARDIAC THROMBUS [None]
  - LUMBAR HERNIA [None]
  - MUSCLE SPASMS [None]
  - MUSCLE STRAIN [None]
  - MYOCARDIAL INFARCTION [None]
  - NECK PAIN [None]
  - NERVE COMPRESSION [None]
  - ROAD TRAFFIC ACCIDENT [None]
  - ROTATOR CUFF SYNDROME [None]
  - SHOULDER PAIN [None]
  - TENDON SHEATH LESION EXCISION [None]
  - THROMBOSIS [None]
